FAERS Safety Report 6122920-2 (Version None)
Quarter: 2009Q1

REPORT INFORMATION
  Report Type: 
  Country: None (occurrence: None)
  Receive Date: 20090318
  Receipt Date: 20080523
  Transmission Date: 20090719
  Serious: No
  Sender: FDA-Public Use
  Company Number: US-AMGEN-KDL281865

PATIENT
  Sex: Male

DRUGS (5)
  1. NEULASTA [Suspect]
     Indication: CHEMOTHERAPY
     Dates: start: 20080429
  2. ADRIAMYCIN RDF [Concomitant]
  3. BLEOMYCIN SULFATE [Concomitant]
  4. VINBLASTINE [Concomitant]
  5. DACARBAZINE [Concomitant]

REACTIONS (1)
  - POSITRON EMISSION TOMOGRAM ABNORMAL [None]
